FAERS Safety Report 16762244 (Version 2)
Quarter: 2025Q3

REPORT INFORMATION
  Report Type: Spontaneous
  Country: EU (occurrence: EU)
  Receive Date: 20190831
  Receipt Date: 20250709
  Transmission Date: 20251021
  Serious: Yes (Hospitalization, Other)
  Sender: AUROBINDO
  Company Number: EU-AUROBINDO-AUR-APL-2019-057184

PATIENT
  Age: 53 Year
  Sex: Male

DRUGS (3)
  1. LAMIVUDINE [Suspect]
     Active Substance: LAMIVUDINE
     Indication: HIV infection
     Route: 065
  2. STAVUDINE [Suspect]
     Active Substance: STAVUDINE
     Indication: HIV infection
     Route: 065
  3. INDINAVIR [Suspect]
     Active Substance: INDINAVIR
     Indication: HIV infection
     Route: 065

REACTIONS (11)
  - Lipodystrophy acquired [Unknown]
  - Papillary thyroid cancer [Unknown]
  - Fat tissue decreased [Unknown]
  - Tracheal stenosis [Unknown]
  - Goitre [Unknown]
  - Lipid metabolism disorder [Unknown]
  - Lipohypertrophy [Unknown]
  - Thyroid mass [Unknown]
  - Dysphonia [Unknown]
  - Hypertriglyceridaemia [Unknown]
  - Hyperthyroidism [Unknown]
